FAERS Safety Report 11872241 (Version 1)
Quarter: 2015Q4

REPORT INFORMATION
  Report Type: Spontaneous
  Country: NL (occurrence: NL)
  Receive Date: 20151228
  Receipt Date: 20151228
  Transmission Date: 20160305
  Serious: Yes (Hospitalization)
  Sender: FDA-Public Use
  Company Number: NL-FRESENIUS KABI-FK201506838

PATIENT
  Age: 70 Year
  Sex: Female

DRUGS (1)
  1. LIDOCAINE/EPINEPHRINE (MANUFACTURER UNKNOWN) [Suspect]
     Active Substance: EPINEPHRINE BITARTRATE\LIDOCAINE HYDROCHLORIDE
     Indication: TENDON OPERATION
     Route: 065

REACTIONS (2)
  - Extremity necrosis [Recovered/Resolved]
  - Peripheral ischaemia [Recovered/Resolved]
